FAERS Safety Report 11645997 (Version 1)
Quarter: 2015Q4

REPORT INFORMATION
  Report Type: Spontaneous
  Country: US (occurrence: US)
  Receive Date: 20151020
  Receipt Date: 20151020
  Transmission Date: 20160304
  Serious: No
  Sender: FDA-Public Use
  Company Number: US-ROCHE-1605297

PATIENT
  Sex: Male
  Weight: 59.93 kg

DRUGS (2)
  1. ESBRIET [Suspect]
     Active Substance: PIRFENIDONE
     Indication: IDIOPATHIC PULMONARY FIBROSIS
     Dosage: 267 MG CAPSULES, 3 CAPS PO TID
     Route: 048
  2. ESBRIET [Suspect]
     Active Substance: PIRFENIDONE
     Dosage: 267 MG TWO TIMES IN A DAY
     Route: 048
     Dates: start: 20150616

REACTIONS (3)
  - Abdominal discomfort [Unknown]
  - Rash pruritic [Unknown]
  - Pruritus [Unknown]
